FAERS Safety Report 16927114 (Version 6)
Quarter: 2020Q1

REPORT INFORMATION
  Report Type: Spontaneous
  Country: GB (occurrence: GB)
  Receive Date: 20191016
  Receipt Date: 20200210
  Transmission Date: 20200409
  Serious: Yes (Other)
  Sender: FDA-Public Use
  Company Number: GB-MYLANLABS-2019M1097065

PATIENT
  Sex: Male

DRUGS (5)
  1. ATORVASTATIN [Concomitant]
     Active Substance: ATORVASTATIN
     Dosage: UNK
  2. AMLODIPINE [Concomitant]
     Active Substance: AMLODIPINE BESYLATE
     Dosage: UNK
  3. INDAPAMIDE. [Concomitant]
     Active Substance: INDAPAMIDE
     Dosage: UNK
  4. RAMIPRIL. [Concomitant]
     Active Substance: RAMIPRIL
     Dosage: UNK
  5. VENLAFAXINE [Suspect]
     Active Substance: VENLAFAXINE HYDROCHLORIDE
     Indication: PRODUCT USED FOR UNKNOWN INDICATION
     Dosage: UNK

REACTIONS (26)
  - Ventricular hypertrophy [Unknown]
  - Renal artery stenosis [Unknown]
  - Orthostatic hypotension [Unknown]
  - Left ventricular enlargement [Unknown]
  - Glucose tolerance impaired [Unknown]
  - Vitamin D decreased [Unknown]
  - Malaise [Unknown]
  - Hypertension [Recovered/Resolved]
  - Back pain [Unknown]
  - Vomiting [Unknown]
  - Erectile dysfunction [Unknown]
  - Libido decreased [Unknown]
  - Hyperaesthesia teeth [Unknown]
  - Carotid arteriosclerosis [Unknown]
  - Blood iron decreased [Unknown]
  - Myalgia [Unknown]
  - Chills [Unknown]
  - Diarrhoea [Unknown]
  - Musculoskeletal pain [Unknown]
  - Protein urine present [Unknown]
  - Fatigue [Unknown]
  - Bruxism [Unknown]
  - Blood cholesterol increased [Unknown]
  - Hypoacusis [Unknown]
  - Onychomycosis [Unknown]
  - Product dose omission [Unknown]

NARRATIVE: CASE EVENT DATE: 201812
